FAERS Safety Report 5766599-8 (Version None)
Quarter: 2008Q2

REPORT INFORMATION
  Report Type: 
  Country: None (occurrence: None)
  Receive Date: 20080610
  Receipt Date: 20080610
  Transmission Date: 20081010
  Serious: No
  Sender: FDA-Public Use
  Company Number: None

PATIENT
  Age: 74 Year
  Sex: Male
  Weight: 115 kg

DRUGS (1)
  1. ATORVASTIN SODIUM [Suspect]
     Indication: BLOOD CHOLESTEROL INCREASED
     Dosage: 80MG EVENINGS -6PM PO/APPROX 30 DAYS
     Route: 048

REACTIONS (6)
  - DRUG EFFECT DECREASED [None]
  - GROIN PAIN [None]
  - MASTICATION DISORDER [None]
  - PAIN IN EXTREMITY [None]
  - PAIN IN JAW [None]
  - RHABDOMYOLYSIS [None]
